FAERS Safety Report 5208776-0 (Version None)
Quarter: 2007Q1

REPORT INFORMATION
  Report Type: 
  Country: None (occurrence: None)
  Receive Date: 20070116
  Receipt Date: 20070110
  Transmission Date: 20070707
  Serious: Yes (Hospitalization)
  Sender: FDA-Public Use
  Company Number: 2007PK00036

PATIENT
  Age: 76 Year
  Sex: Male
  Weight: 88 kg

DRUGS (8)
  1. BELOC ZOK [Suspect]
     Indication: ATRIAL FIBRILLATION
     Route: 048
  2. BELOC ZOK [Suspect]
     Indication: HYPERTENSION
     Route: 048
  3. ENAHEXAL [Suspect]
     Indication: HYPERTENSION
     Route: 048
  4. ALLOPURINOL TAB [Concomitant]
  5. HCT-HEXAL [Concomitant]
  6. ATORVASTATIN CALCIUM [Concomitant]
  7. OMEPRAZOLE [Concomitant]
  8. ISCOVER [Concomitant]

REACTIONS (1)
  - HYPOGLYCAEMIA [None]
